FAERS Safety Report 13006229 (Version 1)
Quarter: 2016Q4

REPORT INFORMATION
  Report Type: Report from Study
  Country: US (occurrence: US)
  Receive Date: 20161207
  Receipt Date: 20161207
  Transmission Date: 20170207
  Serious: Yes (Disabling, Other)
  Sender: FDA-Public Use
  Company Number: US-MALLINCKRODT-T201606334

PATIENT
  Age: 38 Year
  Sex: Female

DRUGS (1)
  1. UVADEX [Suspect]
     Active Substance: METHOXSALEN
     Indication: MYCOSIS FUNGOIDES
     Dosage: UNK
     Route: 065
     Dates: start: 19931001, end: 2014

REACTIONS (5)
  - Colon cancer [Unknown]
  - Fatigue [Unknown]
  - Bone marrow transplant [Unknown]
  - Graft versus host disease [Unknown]
  - Nausea [Unknown]

NARRATIVE: CASE EVENT DATE: 19931001
